FAERS Safety Report 9774430 (Version 5)
Quarter: 2014Q2

REPORT INFORMATION
  Report Type: Report from Study
  Country: DE (occurrence: DE)
  Receive Date: 20131220
  Receipt Date: 20140609
  Transmission Date: 20141212
  Serious: Yes (Death, Hospitalization)
  Sender: FDA-Public Use
  Company Number: DE-ROCHE-1323500

PATIENT
  Age: 77 Year
  Sex: Male

DRUGS (3)
  1. RANIBIZUMAB [Suspect]
     Indication: AGE-RELATED MACULAR DEGENERATION
     Route: 050
     Dates: start: 20130710, end: 20130904
  2. OLMETEC [Concomitant]
     Route: 065
     Dates: start: 20050125
  3. FLOXAL [Concomitant]
     Route: 065
     Dates: start: 20130710

REACTIONS (3)
  - Myocardial infarction [Fatal]
  - Pelvic venous thrombosis [Fatal]
  - Pulmonary embolism [Fatal]
